APPROVED DRUG PRODUCT: AMANTADINE HYDROCHLORIDE
Active Ingredient: AMANTADINE HYDROCHLORIDE
Strength: 100MG
Dosage Form/Route: CAPSULE;ORAL
Application: A212044 | Product #001 | TE Code: AB
Applicant: RUBICON RESEARCH LTD
Approved: May 21, 2020 | RLD: No | RS: No | Type: RX